FAERS Safety Report 7098336-1 (Version None)
Quarter: 2010Q4

REPORT INFORMATION
  Report Type: 
  Country: None (occurrence: None)
  Receive Date: 20101112
  Receipt Date: 20101108
  Transmission Date: 20110411
  Serious: No
  Sender: FDA-Public Use
  Company Number: US-PFIZER INC-2010143135

PATIENT
  Sex: Male
  Weight: 109 kg

DRUGS (2)
  1. LYRICA [Suspect]
     Indication: FIBROMYALGIA
     Dosage: 200 MG, 3X/DAY
     Route: 048
     Dates: start: 20101001, end: 20101106
  2. CELEBREX [Concomitant]
     Indication: ARTHRITIS
     Dosage: UNK

REACTIONS (3)
  - HEADACHE [None]
  - NAUSEA [None]
  - WITHDRAWAL SYNDROME [None]
